FAERS Safety Report 24877288 (Version 1)
Quarter: 2025Q1

REPORT INFORMATION
  Report Type: Spontaneous
  Country: US (occurrence: US)
  Receive Date: 20250123
  Receipt Date: 20250123
  Transmission Date: 20250409
  Serious: Yes (Other)
  Sender: ALKEM
  Company Number: US-ALKEM LABORATORIES LIMITED-US-ALKEM-2025-00464

PATIENT
  Age: 53 Year
  Sex: Female

DRUGS (5)
  1. NIFEDIPINE [Suspect]
     Active Substance: NIFEDIPINE
     Indication: Hypertension
     Dosage: 30 MILLIGRAM, QD
     Route: 065
  2. ESCITALOPRAM [Suspect]
     Active Substance: ESCITALOPRAM OXALATE
     Indication: Major depression
     Dosage: 10 MILLIGRAM, QD
     Route: 065
  3. ESCITALOPRAM [Suspect]
     Active Substance: ESCITALOPRAM OXALATE
     Dosage: 20 MILLIGRAM, QD (1 WEEK LATER)
     Route: 065
  4. RIVAROXABAN [Suspect]
     Active Substance: RIVAROXABAN
     Indication: Anticoagulant therapy
     Route: 065
  5. LEVOTHYROXINE [Suspect]
     Active Substance: LEVOTHYROXINE
     Indication: Hypothyroidism
     Dosage: 50 MICROGRAM, QD
     Route: 065

REACTIONS (10)
  - Suicidal ideation [Recovered/Resolved]
  - Anger [Recovering/Resolving]
  - Agitated depression [Recovering/Resolving]
  - Decreased appetite [Recovering/Resolving]
  - Euphoric mood [Recovering/Resolving]
  - Irritability [Recovering/Resolving]
  - Perseveration [Recovering/Resolving]
  - Poor quality sleep [Recovering/Resolving]
  - Condition aggravated [Recovering/Resolving]
  - Treatment noncompliance [Unknown]
